FAERS Safety Report 7214285-X (Version None)
Quarter: 2011Q1

REPORT INFORMATION
  Report Type: 
  Country: None (occurrence: None)
  Receive Date: 20110107
  Receipt Date: 20101227
  Transmission Date: 20110831
  Serious: Yes (Life-Threatening, Other)
  Sender: FDA-Public Use
  Company Number: JP-CELGENEUS-087-21880-10111722

PATIENT
  Sex: Male
  Weight: 54 kg

DRUGS (14)
  1. DEPAS [Concomitant]
     Route: 048
     Dates: end: 20101006
  2. CORTRIL [Concomitant]
     Route: 048
     Dates: end: 20101006
  3. LENDORMIN [Concomitant]
     Route: 048
     Dates: end: 20101006
  4. DUROTEP [Concomitant]
     Route: 048
     Dates: end: 20101013
  5. REVLIMID [Suspect]
     Indication: MULTIPLE MYELOMA
     Route: 048
     Dates: start: 20100930, end: 20101007
  6. CRAVIT [Concomitant]
     Indication: PROPHYLAXIS
     Route: 048
     Dates: start: 20100928, end: 20101006
  7. LENADEX [Suspect]
     Indication: MULTIPLE MYELOMA
     Route: 048
     Dates: start: 20100930, end: 20101003
  8. ALLOPURINOL [Concomitant]
     Indication: PROPHYLAXIS
     Route: 048
     Dates: end: 20101006
  9. GASPORT [Concomitant]
     Indication: PROPHYLAXIS
     Route: 041
     Dates: start: 20101007, end: 20101013
  10. PARIET [Concomitant]
     Indication: PROPHYLAXIS
     Route: 048
     Dates: end: 20101006
  11. GABAPENTIN [Concomitant]
     Route: 048
     Dates: end: 20101006
  12. METHYCOBAL [Concomitant]
     Route: 048
     Dates: end: 20101006
  13. VALTREX [Concomitant]
     Indication: PROPHYLAXIS
     Route: 048
     Dates: end: 20101006
  14. MORPHINE HYDROCHLORIDE [Concomitant]
     Route: 041
     Dates: start: 20101012, end: 20101013

REACTIONS (4)
  - THROMBOCYTOPENIA [None]
  - NEUTROPENIA [None]
  - HAEMOGLOBIN DECREASED [None]
  - NEOPLASM MALIGNANT [None]
